FAERS Safety Report 7055950-7 (Version None)
Quarter: 2010Q4

REPORT INFORMATION
  Report Type: 
  Country: None (occurrence: None)
  Receive Date: 20101021
  Receipt Date: 20101015
  Transmission Date: 20110411
  Serious: Yes (Hospitalization)
  Sender: FDA-Public Use
  Company Number: A0810451A

PATIENT
  Age: 75 Year
  Sex: Male

DRUGS (8)
  1. AVANDIA [Suspect]
     Dosage: 4MG TWICE PER DAY
     Route: 048
     Dates: start: 20030301, end: 20070101
  2. LISINOPRIL [Concomitant]
  3. LOPRESSOR [Concomitant]
  4. INSULIN [Concomitant]
  5. LOPID [Concomitant]
  6. ATIVAN [Concomitant]
  7. ZOCOR [Concomitant]
  8. TOBRADEX [Concomitant]

REACTIONS (8)
  - AORTIC STENOSIS [None]
  - ARRHYTHMIA [None]
  - ASTHENIA [None]
  - CARDIAC FAILURE CONGESTIVE [None]
  - CORONARY ARTERY DISEASE [None]
  - DEPRESSION [None]
  - DIZZINESS [None]
  - MYOCARDIAL INFARCTION [None]
